FAERS Safety Report 5932235-0 (Version None)
Quarter: 2008Q4

REPORT INFORMATION
  Report Type: 
  Country: None (occurrence: None)
  Receive Date: 20081028
  Receipt Date: 20081022
  Transmission Date: 20090506
  Serious: Yes (Other)
  Sender: FDA-Public Use
  Company Number: US-BRISTOL-MYERS SQUIBB COMPANY-14378988

PATIENT

DRUGS (1)
  1. IXEMPRA KIT [Suspect]
     Route: 042

REACTIONS (1)
  - INTESTINAL INFARCTION [None]
